FAERS Safety Report 24540394 (Version 1)
Quarter: 2024Q4

REPORT INFORMATION
  Report Type: Spontaneous
  Country: US (occurrence: US)
  Receive Date: 20241023
  Receipt Date: 20241023
  Transmission Date: 20250114
  Serious: Yes (Life-Threatening, Hospitalization)
  Sender: ELI LILLY AND COMPANY
  Company Number: US-ELI_LILLY_AND_COMPANY-US202410013120

PATIENT
  Age: 68 Year
  Sex: Female

DRUGS (2)
  1. HUMALOG [Suspect]
     Active Substance: INSULIN LISPRO
     Indication: Product used for unknown indication
     Dosage: UNK UNK, UNKNOWN
     Route: 065
  2. TOUJEO [Concomitant]
     Active Substance: INSULIN GLARGINE
     Indication: Diabetes mellitus

REACTIONS (11)
  - Fournier^s gangrene [Recovering/Resolving]
  - Chapped lips [Recovering/Resolving]
  - Lip blister [Recovering/Resolving]
  - Eye abrasion [Recovering/Resolving]
  - Lip swelling [Recovering/Resolving]
  - Visual impairment [Unknown]
  - Fall [Unknown]
  - Mobility decreased [Unknown]
  - Oral discomfort [Unknown]
  - Anaemia [Unknown]
  - Head discomfort [Unknown]

NARRATIVE: CASE EVENT DATE: 20020601
